FAERS Safety Report 11044327 (Version 2)
Quarter: 2015Q2

REPORT INFORMATION
  Report Type: Spontaneous
  Country: FR (occurrence: FR)
  Receive Date: 20150417
  Receipt Date: 20150424
  Transmission Date: 20150821
  Serious: Yes (Hospitalization)
  Sender: FDA-Public Use
  Company Number: FR-PFIZER INC-2015128531

PATIENT
  Age: 68 Year
  Sex: Female

DRUGS (10)
  1. LAROXYL [Suspect]
     Active Substance: AMITRIPTYLINE
     Dosage: UNK, SINGLE
     Route: 048
     Dates: start: 20150108, end: 20150108
  2. NOCTAMIDE [Suspect]
     Active Substance: LORMETAZEPAM
     Dosage: UNK, SINGLE
     Route: 048
     Dates: start: 20150108, end: 20150108
  3. EFFEXOR [Suspect]
     Active Substance: VENLAFAXINE HYDROCHLORIDE
     Indication: DEPRESSION
     Dosage: 75 MG, 1X/DAY
     Route: 048
     Dates: end: 20150108
  4. ALTEIS [Suspect]
     Active Substance: OLMESARTAN MEDOXOMIL
     Dosage: UNK, SINGLE
     Route: 048
     Dates: start: 20150108, end: 20150108
  5. NOCTAMIDE [Suspect]
     Active Substance: LORMETAZEPAM
     Dosage: 2 MG, 1X/DAY
     Route: 048
     Dates: end: 20150108
  6. EFFEXOR [Suspect]
     Active Substance: VENLAFAXINE HYDROCHLORIDE
     Dosage: UNK, SINGLE
     Route: 048
     Dates: start: 20150108, end: 20150108
  7. DAFALGAN [Concomitant]
     Active Substance: ACETAMINOPHEN
     Dosage: UNK
  8. ALTEIS [Suspect]
     Active Substance: OLMESARTAN MEDOXOMIL
     Indication: HYPERTENSION
     Dosage: 10 MG, 1X/DAY
     Route: 048
     Dates: end: 20150107
  9. ALTEIS [Suspect]
     Active Substance: OLMESARTAN MEDOXOMIL
     Dosage: 10, SINGLE
     Route: 048
     Dates: start: 20150110
  10. LAROXYL [Suspect]
     Active Substance: AMITRIPTYLINE
     Indication: PARAESTHESIA
     Dosage: 5 GTT, UNK
     Route: 048
     Dates: start: 20141222, end: 20150107

REACTIONS (3)
  - Suicide attempt [Recovered/Resolved]
  - Electrocardiogram change [Recovered/Resolved]
  - Coma [Recovered/Resolved]

NARRATIVE: CASE EVENT DATE: 20150108
